FAERS Safety Report 4781519-0 (Version None)
Quarter: 2005Q3

REPORT INFORMATION
  Report Type: 
  Country: None (occurrence: None)
  Receive Date: 20050928
  Receipt Date: 20050922
  Transmission Date: 20060218
  Serious: Yes (Other)
  Sender: FDA-Public Use
  Company Number: 2005UW14092

PATIENT
  Sex: Male

DRUGS (2)
  1. SEROQUEL [Suspect]
     Route: 064
  2. ACETAMINOPHEN [Suspect]
     Route: 064

REACTIONS (5)
  - ALANINE AMINOTRANSFERASE INCREASED [None]
  - NEONATAL TACHYPNOEA [None]
  - OEDEMA [None]
  - OEDEMA NEONATAL [None]
  - TACHYPNOEA [None]
